FAERS Safety Report 17457083 (Version 1)
Quarter: 2020Q1

REPORT INFORMATION
  Report Type: Spontaneous
  Country: US (occurrence: US)
  Receive Date: 20200225
  Receipt Date: 20200225
  Transmission Date: 20200409
  Serious: No
  Sender: FDA-Public Use
  Company Number: US-SA-2020SA047098

PATIENT
  Age: 36 Year
  Sex: Female

DRUGS (11)
  1. APAP/CODEINE [CODEINE;PARACETAMOL] [Concomitant]
  2. DUPIXENT [Suspect]
     Active Substance: DUPILUMAB
     Dosage: UNK
  3. ESTARYLLA [Concomitant]
     Active Substance: ETHINYL ESTRADIOL\NORGESTIMATE
  4. AUGMENTED BETAMETHASONE DIPROPIONATE [Concomitant]
  5. HYDROCORT [HYDROCORTISONE ACETATE] [Concomitant]
  6. SULINDAC. [Concomitant]
     Active Substance: SULINDAC
  7. PREDNISONE. [Concomitant]
     Active Substance: PREDNISONE
  8. DUPIXENT [Suspect]
     Active Substance: DUPILUMAB
     Indication: DERMATITIS ATOPIC
     Dosage: 600 MG, 1X
     Route: 058
     Dates: start: 20200201, end: 20200201
  9. CARISOPRODOL. [Concomitant]
     Active Substance: CARISOPRODOL
  10. FLUCONAZOLE. [Concomitant]
     Active Substance: FLUCONAZOLE
  11. AMOXICILLIN/CLAVULANIC ACID [Concomitant]
     Active Substance: AMOXICILLIN\CLAVULANIC ACID

REACTIONS (4)
  - Pain [Not Recovered/Not Resolved]
  - Discomfort [Not Recovered/Not Resolved]
  - Infection [Not Recovered/Not Resolved]
  - Dermatitis atopic [Not Recovered/Not Resolved]

NARRATIVE: CASE EVENT DATE: 202002
